FAERS Safety Report 18453178 (Version 1)
Quarter: 2020Q4

REPORT INFORMATION
  Report Type: Spontaneous
  Country: US (occurrence: US)
  Receive Date: 20201102
  Receipt Date: 20201102
  Transmission Date: 20210114
  Serious: Yes (Death)
  Sender: FDA-Public Use
  Company Number: None

PATIENT
  Age: 82 Year
  Sex: Male

DRUGS (7)
  1. LOPERAMIDE 2MG [Concomitant]
     Active Substance: LOPERAMIDE
     Dates: start: 20201001, end: 20201024
  2. PANTOPRAZOLE 20MG [Concomitant]
     Active Substance: PANTOPRAZOLE SODIUM
     Dates: start: 20201009, end: 20201024
  3. SEVELAMER 800MG [Concomitant]
     Active Substance: SEVELAMER
     Dates: start: 20200907, end: 20201024
  4. TYLENOL [Concomitant]
     Active Substance: ACETAMINOPHEN
     Dates: start: 20200902, end: 20200904
  5. OCTREOTIDE. [Suspect]
     Active Substance: OCTREOTIDE
     Indication: NEOPLASM MALIGNANT
     Route: 058
  6. HYDROCODONE/APAP 5-325MG [Concomitant]
     Dates: start: 20200908, end: 20201008
  7. FINASTERIDE 5MG [Concomitant]
     Active Substance: FINASTERIDE
     Dates: start: 20200917, end: 20201024

REACTIONS (1)
  - Death [None]

NARRATIVE: CASE EVENT DATE: 20201024
